FAERS Safety Report 7725145-X (Version None)
Quarter: 2011Q3

REPORT INFORMATION
  Report Type: 
  Country: None (occurrence: None)
  Receive Date: 20110901
  Receipt Date: 20110822
  Transmission Date: 20111222
  Serious: Yes (Other)
  Sender: FDA-Public Use
  Company Number: US-US-EMD SERONO, INC.-7079079

PATIENT
  Sex: Female

DRUGS (4)
  1. REBIF [Suspect]
     Indication: MULTIPLE SCLEROSIS
     Dates: start: 20070501
  2. DETROL [Concomitant]
     Indication: BLADDER DISORDER
  3. PREMARIN [Concomitant]
     Indication: HORMONE THERAPY
  4. REBIF [Suspect]
     Route: 058
     Dates: start: 20100201

REACTIONS (5)
  - INJECTION SITE PAIN [None]
  - OPTIC NEURITIS [None]
  - HEPATIC ENZYME INCREASED [None]
  - INJECTION SITE ERYTHEMA [None]
  - MULTIPLE SCLEROSIS RELAPSE [None]
